FAERS Safety Report 6988388-9 (Version None)
Quarter: 2010Q3

REPORT INFORMATION
  Report Type: 
  Country: None (occurrence: None)
  Receive Date: 20100916
  Receipt Date: 20100910
  Transmission Date: 20110219
  Serious: Yes (Other)
  Sender: FDA-Public Use
  Company Number: US-B.I. PHARMACEUTICALS,INC./RIDGEFIELD-2010-BP-10380PF

PATIENT
  Sex: Male
  Weight: 68 kg

DRUGS (6)
  1. SPIRIVA [Suspect]
     Indication: CHRONIC OBSTRUCTIVE PULMONARY DISEASE
     Dates: start: 20100101
  2. SPIRIVA [Suspect]
     Indication: BRONCHITIS
  3. CHANTIX [Suspect]
     Indication: SMOKING CESSATION THERAPY
     Dosage: 0.5 MG
     Route: 048
     Dates: start: 20100101
  4. CHANTIX [Suspect]
     Dosage: 2 MG
     Route: 048
     Dates: start: 20100101
  5. ADVAIR DISKUS 100/50 [Suspect]
     Indication: CHRONIC OBSTRUCTIVE PULMONARY DISEASE
     Dates: start: 20100101
  6. ADVAIR DISKUS 100/50 [Suspect]
     Indication: BRONCHITIS

REACTIONS (3)
  - DIZZINESS [None]
  - DRY MOUTH [None]
  - NAUSEA [None]
